FAERS Safety Report 8797112 (Version 1)
Quarter: 2012Q4

REPORT INFORMATION
  Report Type: 
  Country: US (occurrence: US)
  Receive Date: 20120919
  Receipt Date: 20120919
  Transmission Date: 20130627
  Serious: Yes (Death, Hospitalization)
  Sender: FDA-Public Use
  Company Number: CHPA2012US019924

PATIENT
  Sex: Female

DRUGS (1)
  1. EXCEDRIN [Suspect]
     Indication: ARTHRITIS
     Dosage: 1 DF, PRN
     Route: 048

REACTIONS (4)
  - Loss of consciousness [Fatal]
  - Feeling abnormal [Unknown]
  - Abdominal discomfort [Unknown]
  - Underdose [Unknown]
